FAERS Safety Report 9712982 (Version 2)
Quarter: 2013Q4

REPORT INFORMATION
  Report Type: Spontaneous
  Country: US (occurrence: US)
  Receive Date: 20131126
  Receipt Date: 20131126
  Transmission Date: 20140711
  Serious: No
  Sender: FDA-Public Use
  Company Number: US-BRISTOL-MYERS SQUIBB COMPANY-18953729

PATIENT
  Age: 61 Year
  Sex: Male
  Weight: 98.86 kg

DRUGS (6)
  1. BYDUREON [Suspect]
     Indication: TYPE 2 DIABETES MELLITUS
     Route: 058
     Dates: start: 20130314
  2. METFORMIN HCL [Suspect]
  3. GLIPIZIDE [Suspect]
  4. SIMVASTATIN [Concomitant]
  5. ZOFRAN [Concomitant]
  6. GLUCOSAMINE [Concomitant]

REACTIONS (2)
  - Urticaria [Recovered/Resolved]
  - Hypoaesthesia oral [Not Recovered/Not Resolved]
